FAERS Safety Report 10462671 (Version 1)
Quarter: 2014Q3

REPORT INFORMATION
  Report Type: Spontaneous
  Country: US (occurrence: US)
  Receive Date: 20140918
  Receipt Date: 20140918
  Transmission Date: 20150326
  Serious: No
  Sender: FDA-Public Use
  Company Number: US-JNJFOC-20140820242

PATIENT
  Age: 37 Year
  Sex: Male
  Weight: 86.18 kg

DRUGS (2)
  1. INVEGA [Suspect]
     Active Substance: PALIPERIDONE
     Indication: PRODUCT USED FOR UNKNOWN INDICATION
     Route: 048
     Dates: end: 201405
  2. INVEGA SUSTENNA [Suspect]
     Active Substance: PALIPERIDONE PALMITATE
     Indication: SCHIZOAFFECTIVE DISORDER
     Route: 030
     Dates: start: 2014, end: 2014

REACTIONS (6)
  - Drug dose omission [Unknown]
  - Abdominal distension [Not Recovered/Not Resolved]
  - Feeling abnormal [Not Recovered/Not Resolved]
  - Adverse event [Unknown]
  - Weight increased [Not Recovered/Not Resolved]
  - Increased appetite [Not Recovered/Not Resolved]

NARRATIVE: CASE EVENT DATE: 2014
